FAERS Safety Report 9408075 (Version 1)
Quarter: 2013Q3

REPORT INFORMATION
  Report Type: Spontaneous
  Country: DE (occurrence: DE)
  Receive Date: 20130718
  Receipt Date: 20130718
  Transmission Date: 20140515
  Serious: Yes (Congenital Anomaly, Other)
  Sender: FDA-Public Use
  Company Number: DE-TEVA-417773GER

PATIENT
  Age: 0 Year
  Sex: Male
  Weight: 2.71 kg

DRUGS (5)
  1. RAMIPRIL [Suspect]
     Route: 064
  2. MOXONIDINE [Suspect]
     Route: 064
  3. TORASEMIDE [Suspect]
     Route: 064
  4. AMLODIPINE [Suspect]
     Route: 064
  5. METOPROLOL-CORAX [Concomitant]
     Route: 064

REACTIONS (7)
  - Atrial septal defect [Recovered/Resolved]
  - Cranial sutures widening [Not Recovered/Not Resolved]
  - Foot deformity [Not Recovered/Not Resolved]
  - Cardiac septal hypertrophy [Recovered/Resolved]
  - Abnormal palmar/plantar creases [Not Recovered/Not Resolved]
  - Dysmorphism [Not Recovered/Not Resolved]
  - Strabismus [Unknown]
